FAERS Safety Report 8813138 (Version 1)
Quarter: 2012Q4

REPORT INFORMATION
  Report Type: 
  Country: US (occurrence: US)
  Receive Date: 20120927
  Receipt Date: 20120927
  Transmission Date: 20130627
  Serious: No
  Sender: FDA-Public Use
  Company Number: US-AMGEN-USASP2012039605

PATIENT
  Age: 59 Year
  Sex: Female
  Weight: 62.59 kg

DRUGS (6)
  1. PROLIA [Suspect]
     Indication: OSTEOPOROSIS POSTMENOPAUSAL
     Dosage: 60 mg, q6mo
     Route: 058
     Dates: start: 20120620
  2. ZYRTEC-D [Concomitant]
     Indication: HYPERSENSITIVITY
     Dosage: UNK UNK, qd
     Route: 048
  3. VITAMIN D [Concomitant]
     Indication: VITAMIN D DECREASED
     Dosage: 50000 IU, qd
     Route: 048
  4. CALCIUM [Concomitant]
     Dosage: 1000 mg, qd
  5. MULTIVITAMIN                       /00097801/ [Concomitant]
     Dosage: UNK UNK, qd
     Route: 048
  6. VAGIFEM [Concomitant]
     Indication: ATROPHIC VULVOVAGINITIS
     Dosage: 10 mug, 2 times/wk
     Route: 067

REACTIONS (1)
  - Fatigue [Recovering/Resolving]
